FAERS Safety Report 21188207 (Version 1)
Quarter: 2022Q3

REPORT INFORMATION
  Report Type: Spontaneous
  Country: US (occurrence: US)
  Receive Date: 20220809
  Receipt Date: 20220809
  Transmission Date: 20221027
  Serious: No
  Sender: FDA-Public Use
  Company Number: US-APOTEX-2022AP009901

PATIENT

DRUGS (2)
  1. SIROLIMUS [Suspect]
     Active Substance: SIROLIMUS
     Indication: Systemic lupus erythematosus
     Dosage: 2 MILLIGRAM, QD
     Route: 048
  2. SIROLIMUS [Suspect]
     Active Substance: SIROLIMUS
     Dosage: DOSE TITRATED BASED ON THE TOLERANCE TO MAINTAIN A THERAPEUTIC RANGE OF 6?15 NG/ML
     Route: 048

REACTIONS (2)
  - Drug intolerance [Unknown]
  - Rash [Unknown]
